FAERS Safety Report 22317521 (Version 1)
Quarter: 2023Q2

REPORT INFORMATION
  Report Type: Spontaneous
  Country: US (occurrence: US)
  Receive Date: 20230515
  Receipt Date: 20230515
  Transmission Date: 20230722
  Serious: No
  Sender: FDA-Public Use
  Company Number: US-SANOFI-01609923

PATIENT
  Sex: Female

DRUGS (1)
  1. ALLEGRA ALLERGY [Suspect]
     Active Substance: FEXOFENADINE HYDROCHLORIDE
     Dosage: 2 DF, QD,2 PILLS AT ONE TIME
     Route: 065

REACTIONS (6)
  - Cystitis [Unknown]
  - Nasopharyngitis [Unknown]
  - Dysuria [Unknown]
  - Headache [Unknown]
  - Somnolence [Unknown]
  - Dyspnoea [Unknown]
